FAERS Safety Report 4722872-3 (Version None)
Quarter: 2005Q3

REPORT INFORMATION
  Report Type: 
  Country: None (occurrence: None)
  Receive Date: 20050722
  Receipt Date: 20050420
  Transmission Date: 20060218
  Serious: Yes (Other)
  Sender: FDA-Public Use
  Company Number: PHEH2005US04559

PATIENT
  Age: 90 Year
  Sex: Female

DRUGS (4)
  1. ZOMETA [Suspect]
     Indication: METASTASES TO BONE
     Dosage: 4 MG Q4-6 WKS
     Dates: start: 20020501
  2. TAMOXIFEN CITRATE [Concomitant]
     Indication: BREAST CANCER METASTATIC
  3. ARIMIDEX [Concomitant]
     Indication: BREAST CANCER METASTATIC
     Dosage: 1 MG, QD
     Dates: start: 20050401
  4. ASPIRIN [Concomitant]
     Dosage: 81 MG, QD
     Dates: start: 19990101

REACTIONS (13)
  - ACCIDENT [None]
  - ASEPTIC NECROSIS BONE [None]
  - EXCORIATION [None]
  - FISTULA [None]
  - HAEMORRHAGE [None]
  - HYPERKERATOSIS [None]
  - IMPAIRED HEALING [None]
  - INFLAMMATION [None]
  - MOUTH ULCERATION [None]
  - OPEN WOUND [None]
  - ORAL PAIN [None]
  - OSTEOMYELITIS [None]
  - OSTEONECROSIS [None]
